FAERS Safety Report 15014079 (Version 2)
Quarter: 2018Q4

REPORT INFORMATION
  Report Type: Spontaneous
  Country: US (occurrence: US)
  Receive Date: 20180615
  Receipt Date: 20181101
  Transmission Date: 20190204
  Serious: No
  Sender: FDA-Public Use
  Company Number: US-NEUROCRINE BIOSCIENCES INC.-2018NBI01682

PATIENT
  Age: 54 Year
  Sex: Female

DRUGS (11)
  1. INGREZZA [Suspect]
     Active Substance: VALBENAZINE
     Dates: start: 201805
  2. INSULIN [Concomitant]
     Active Substance: INSULIN NOS
  3. SIMVASTATIN. [Concomitant]
     Active Substance: SIMVASTATIN
  4. PAROXETINE. [Concomitant]
     Active Substance: PAROXETINE
  5. SPIRONOLACTONE. [Concomitant]
     Active Substance: SPIRONOLACTONE
  6. ASPIRIN. [Concomitant]
     Active Substance: ASPIRIN
  7. METOPROLOL. [Concomitant]
     Active Substance: METOPROLOL
  8. LITHIUM. [Concomitant]
     Active Substance: LITHIUM
  9. INGREZZA [Suspect]
     Active Substance: VALBENAZINE
     Indication: TARDIVE DYSKINESIA
     Dosage: ONCE NIGHTLY
     Dates: start: 2017, end: 201803
  10. GABAPENTIN. [Concomitant]
     Active Substance: GABAPENTIN
  11. SYNTHROID [Concomitant]
     Active Substance: LEVOTHYROXINE SODIUM

REACTIONS (1)
  - Depression [Not Recovered/Not Resolved]

NARRATIVE: CASE EVENT DATE: 20180109
